FAERS Safety Report 5905857-0 (Version None)
Quarter: 2008Q4

REPORT INFORMATION
  Report Type: 
  Country: None (occurrence: None)
  Receive Date: 20081001
  Receipt Date: 20081001
  Transmission Date: 20090506
  Serious: Yes (Death)
  Sender: FDA-Public Use
  Company Number: None

PATIENT
  Age: 71 Year
  Sex: Female
  Weight: 69 kg

DRUGS (1)
  1. ZOSYN [Suspect]
     Indication: RESPIRATORY TRACT INFECTION
     Dosage: ACTUALLY RECEIVED ABOUT 0.5 G ONCE IV
     Route: 042
     Dates: start: 20080927, end: 20080927

REACTIONS (10)
  - ANAPHYLACTIC REACTION [None]
  - ARTERIOSPASM CORONARY [None]
  - BRADYCARDIA [None]
  - CARDIO-RESPIRATORY ARREST [None]
  - DRUG HYPERSENSITIVITY [None]
  - DYSPNOEA [None]
  - ELECTROMECHANICAL DISSOCIATION [None]
  - NASAL DISORDER [None]
  - TACHYCARDIA [None]
  - THROMBOSIS [None]
